FAERS Safety Report 6030037-0 (Version None)
Quarter: 2009Q1

REPORT INFORMATION
  Report Type: 
  Country: None (occurrence: None)
  Receive Date: 20090107
  Receipt Date: 20081230
  Transmission Date: 20090719
  Serious: Yes (Hospitalization, Other)
  Sender: FDA-Public Use
  Company Number: GB-ABBOTT-08P-167-0495248-00

PATIENT
  Sex: Male
  Weight: 71.5 kg

DRUGS (12)
  1. KLACID [Suspect]
     Indication: MYCOBACTERIUM AVIUM COMPLEX INFECTION
     Dates: start: 20080905, end: 20081016
  2. DAPSONE [Suspect]
     Indication: PNEUMOCYSTIS JIROVECI PNEUMONIA
     Dates: start: 20080801, end: 20081031
  3. ATRIPLA [Suspect]
     Indication: HIV INFECTION
     Dates: start: 20080801, end: 20081016
  4. DIAZEPAM [Suspect]
     Indication: INSOMNIA
     Dates: start: 20080522, end: 20081204
  5. ETHAMBUTOL [Suspect]
     Indication: MYCOBACTERIUM AVIUM COMPLEX INFECTION
     Dates: start: 20080905, end: 20081016
  6. RIFABUTIN [Suspect]
     Indication: MYCOBACTERIUM AVIUM COMPLEX INFECTION
     Dates: start: 20080905, end: 20081016
  7. EFAVIRENZ [Suspect]
     Indication: HIV INFECTION
     Dates: start: 20080522, end: 20080801
  8. TRUVADA [Suspect]
     Indication: HIV INFECTION
     Dates: start: 20080522, end: 20080801
  9. TERBINAFINE HCL [Concomitant]
     Indication: DRUG USE FOR UNKNOWN INDICATION
  10. CETIRIZINE HCL [Concomitant]
     Indication: DRUG USE FOR UNKNOWN INDICATION
  11. ALBUTEROL [Concomitant]
     Indication: DRUG USE FOR UNKNOWN INDICATION
  12. BECLOMETHASONE DIPROPIONATE [Concomitant]
     Indication: DRUG USE FOR UNKNOWN INDICATION

REACTIONS (7)
  - ASTHENIA [None]
  - CARDIAC ARREST [None]
  - CONFUSIONAL STATE [None]
  - HAEMODIALYSIS [None]
  - HYPERKALAEMIA [None]
  - LOSS OF CONSCIOUSNESS [None]
  - RENAL TUBULAR NECROSIS [None]
